FAERS Safety Report 20980670 (Version 5)
Quarter: 2022Q4

REPORT INFORMATION
  Report Type: Report from Study
  Country: US (occurrence: US)
  Receive Date: 20220620
  Receipt Date: 20221102
  Transmission Date: 20230112
  Serious: Yes (Other)
  Sender: FDA-Public Use
  Company Number: US-NOVARTISPH-NVSC2022US139907

PATIENT
  Sex: Male

DRUGS (5)
  1. ENTRESTO [Suspect]
     Active Substance: SACUBITRIL\VALSARTAN
     Indication: Product used for unknown indication
     Dosage: 1 DOSAGE FORM, BID
     Route: 048
     Dates: start: 20220530
  2. ENTRESTO [Suspect]
     Active Substance: SACUBITRIL\VALSARTAN
     Dosage: 1 DOSAGE FORM, BID (49/51 MG)
     Route: 048
     Dates: start: 20220531
  3. RAMIPRIL [Suspect]
     Active Substance: RAMIPRIL
     Indication: Cardiac failure
     Dosage: UNK, STARTED TWO YEARS AGO
     Route: 065
     Dates: start: 2020, end: 202205
  4. FARXIGA [Suspect]
     Active Substance: DAPAGLIFLOZIN PROPANEDIOL
     Indication: Product used for unknown indication
     Dosage: UNK
     Route: 065
     Dates: start: 20220531
  5. COREG [Suspect]
     Active Substance: CARVEDILOL
     Indication: Cardiac failure
     Dosage: 18.75 MG, QD, STARTED TWO YEARS AGO
     Route: 065
     Dates: start: 2020

REACTIONS (15)
  - Hypothyroidism [Unknown]
  - Hyperthyroidism [Unknown]
  - Weight decreased [Unknown]
  - Blood potassium increased [Unknown]
  - Ventricular extrasystoles [Recovered/Resolved]
  - Illness [Recovered/Resolved]
  - Sinusitis [Recovered/Resolved]
  - Bronchospasm [Recovered/Resolved]
  - Cardiac disorder [Unknown]
  - Anti-thyroid antibody [Unknown]
  - Oxygen consumption increased [Unknown]
  - Limb injury [Unknown]
  - Tendon disorder [Unknown]
  - Rotator cuff syndrome [Unknown]
  - Weight fluctuation [Unknown]

NARRATIVE: CASE EVENT DATE: 20210101
